FAERS Safety Report 18196515 (Version 1)
Quarter: 2020Q3

REPORT INFORMATION
  Report Type: Report from Study
  Country: None (occurrence: US)
  Receive Date: 20200825
  Receipt Date: 20200825
  Transmission Date: 20201103
  Serious: Yes (Other)
  Sender: FDA-Public Use
  Company Number: US-ABBVIE-20K-163-3528528-00

PATIENT
  Age: 77 Year
  Sex: Male
  Weight: 81.9 kg

DRUGS (18)
  1. VENCLEXTA [Suspect]
     Active Substance: VENETOCLAX
     Dosage: DOSE DECREASED TO 200MG IN MID APRIL 2020
     Route: 048
     Dates: start: 202004, end: 202004
  2. AMLODIPINE [Concomitant]
     Active Substance: AMLODIPINE BESYLATE
     Indication: PRODUCT USED FOR UNKNOWN INDICATION
     Route: 048
  3. CARVEDILOL. [Concomitant]
     Active Substance: CARVEDILOL
     Indication: PRODUCT USED FOR UNKNOWN INDICATION
     Route: 048
  4. LEVOCETIRIZINE [Concomitant]
     Active Substance: LEVOCETIRIZINE
     Indication: PRODUCT USED FOR UNKNOWN INDICATION
     Dosage: BEDTIME
     Route: 048
  5. VIDAZA [Suspect]
     Active Substance: AZACITIDINE
     Dosage: CYCLE 3 DAY1
     Route: 042
     Dates: start: 20200526, end: 2020
  6. ZOFRAN [Concomitant]
     Active Substance: ONDANSETRON HYDROCHLORIDE
     Indication: PRODUCT USED FOR UNKNOWN INDICATION
     Dosage: 8MG=4ML, DAILY
     Route: 042
  7. OMEPRAZOLE. [Concomitant]
     Active Substance: OMEPRAZOLE
     Indication: PRODUCT USED FOR UNKNOWN INDICATION
     Route: 048
  8. METFORMIN [Concomitant]
     Active Substance: METFORMIN HYDROCHLORIDE
     Indication: PRODUCT USED FOR UNKNOWN INDICATION
     Route: 048
  9. VENCLEXTA [Suspect]
     Active Substance: VENETOCLAX
     Indication: ACUTE MYELOID LEUKAEMIA
     Dosage: TAKE 3 TABLET(S) BY MOUTH ONCE DAILY
     Route: 048
     Dates: start: 20200331, end: 202004
  10. TRIAMCINOLONE [Concomitant]
     Active Substance: TRIAMCINOLONE
     Indication: PRODUCT USED FOR UNKNOWN INDICATION
  11. VIDAZA [Suspect]
     Active Substance: AZACITIDINE
     Dosage: CYCLE 4 DAY1
     Route: 042
     Dates: start: 20200622, end: 2020
  12. HEPARIN FLUSH [Concomitant]
     Active Substance: HEPARIN SODIUM
     Indication: PRODUCT USED FOR UNKNOWN INDICATION
  13. LISINOPRIL. [Concomitant]
     Active Substance: LISINOPRIL
     Indication: PRODUCT USED FOR UNKNOWN INDICATION
  14. VIDAZA [Suspect]
     Active Substance: AZACITIDINE
     Dosage: C2 DAY 1
     Route: 042
     Dates: start: 20200427, end: 2020
  15. VIDAZA [Suspect]
     Active Substance: AZACITIDINE
     Dosage: CYCLE 5 DAY1
     Route: 042
     Dates: start: 20200720
  16. VENCLEXTA [Suspect]
     Active Substance: VENETOCLAX
     Dosage: DOSE INCREASED TO 300 MG IN LATE APRIL 2020
     Route: 048
     Dates: start: 202004
  17. VIDAZA [Suspect]
     Active Substance: AZACITIDINE
     Indication: ACUTE MYELOID LEUKAEMIA
     Dosage: 378ML/HOUR, DAILY, C1 DAY 1
     Route: 042
     Dates: start: 20200330, end: 2020
  18. ALLOPURINOL. [Concomitant]
     Active Substance: ALLOPURINOL
     Indication: PRODUCT USED FOR UNKNOWN INDICATION

REACTIONS (4)
  - Pain [Unknown]
  - Weight decreased [Unknown]
  - Joint surgery [Unknown]
  - Petechiae [Unknown]

NARRATIVE: CASE EVENT DATE: 2020
